FAERS Safety Report 12766486 (Version 2)
Quarter: 2016Q4

REPORT INFORMATION
  Report Type: Spontaneous
  Country: JP (occurrence: JP)
  Receive Date: 20160921
  Receipt Date: 20161103
  Transmission Date: 20170207
  Serious: Yes (Death)
  Sender: FDA-Public Use
  Company Number: JP-ELI_LILLY_AND_COMPANY-JP201609007399

PATIENT
  Age: 65 Year
  Sex: Female
  Weight: 34 kg

DRUGS (5)
  1. PACLITAXEL. [Concomitant]
     Active Substance: PACLITAXEL
     Indication: GASTRIC CANCER RECURRENT
     Dosage: 80 MG, OTHER
     Route: 042
     Dates: start: 20160907, end: 20160907
  2. ORGADRONE                          /00016002/ [Concomitant]
     Indication: VOMITING
     Dosage: UNK
     Dates: start: 20160907
  3. GRANISETRON [Concomitant]
     Active Substance: GRANISETRON
     Indication: VOMITING
     Dosage: UNK
     Dates: start: 20160907
  4. LAFUTIDINE [Concomitant]
     Active Substance: LAFUTIDINE
     Indication: VOMITING
     Dosage: UNK
  5. CYRAMZA [Suspect]
     Active Substance: RAMUCIRUMAB
     Indication: GASTRIC CANCER RECURRENT
     Dosage: 210 MG, OTHER
     Route: 042
     Dates: start: 20160907, end: 20160907

REACTIONS (1)
  - Putamen haemorrhage [Fatal]

NARRATIVE: CASE EVENT DATE: 20160910
